FAERS Safety Report 17163712 (Version 1)
Quarter: 2019Q4

REPORT INFORMATION
  Report Type: Other
  Country: US (occurrence: US)
  Receive Date: 20191217
  Receipt Date: 20191217
  Transmission Date: 20200122
  Serious: Yes (Life-Threatening, Hospitalization, Other)
  Sender: FDA-Public Use
  Company Number: US-AVONDALE PHARMACEUTICALS, LLC-2077889

PATIENT
  Age: 29 Year
  Sex: Female

DRUGS (4)
  1. SSKI [Suspect]
     Active Substance: POTASSIUM IODIDE
     Indication: THYROTOXIC CRISIS
     Route: 065
  2. DEIODINASE INHIBITOR [Suspect]
     Active Substance: UNSPECIFIED INGREDIENT
     Route: 065
  3. STEROIDS [Suspect]
     Active Substance: UNSPECIFIED INGREDIENT
     Route: 065
  4. CHOLESTYRAMINE. [Suspect]
     Active Substance: CHOLESTYRAMINE
     Route: 065

REACTIONS (2)
  - Cardiac arrest [Recovered/Resolved]
  - Drug ineffective for unapproved indication [Unknown]
